FAERS Safety Report 8302344-X (Version None)
Quarter: 2012Q1

REPORT INFORMATION
  Report Type: 
  Country: None (occurrence: None)
  Receive Date: 20120326
  Receipt Date: 20110531
  Transmission Date: 20120608
  Serious: Yes (Other)
  Sender: FDA-Public Use
  Company Number: PHHY2011US48002

PATIENT
  Age: 60 Year
  Sex: Female

DRUGS (6)
  1. LORATADINE [Concomitant]
  2. DOXEPIN HCL [Concomitant]
  3. VIVELLE-DOT [Suspect]
     Dosage: 0.1 MG, QW2, TRANSDERMAL
     Route: 062
  4. PRILOSEC [Concomitant]
  5. ATENOLOL [Concomitant]
  6. HYDROCHLOROTHIAZIDE (HYDROCHLOROTHAZIDE) [Concomitant]

REACTIONS (12)
  - MOOD ALTERED [None]
  - GASTRIC DISORDER [None]
  - SENSATION OF HEAVINESS [None]
  - MUSCULAR WEAKNESS [None]
  - CHEST DISCOMFORT [None]
  - MIGRAINE [None]
  - DIZZINESS [None]
  - FEELING HOT [None]
  - HYPERTENSION [None]
  - NAUSEA [None]
  - QUALITY OF LIFE DECREASED [None]
  - STRESS [None]
